FAERS Safety Report 20229255 (Version 1)
Quarter: 2021Q4

REPORT INFORMATION
  Report Type: Spontaneous
  Country: CA (occurrence: CA)
  Receive Date: 20211225
  Receipt Date: 20211225
  Transmission Date: 20220304
  Serious: Yes (Death)
  Sender: FDA-Public Use
  Company Number: CA-TEVA-2021-CA-1991582

PATIENT
  Age: 58 Year
  Sex: Female
  Weight: 62 kg

DRUGS (7)
  1. QUETIAPINE [Interacting]
     Active Substance: QUETIAPINE
  2. VENLAFAXINE HYDROCHLORIDE [Interacting]
     Active Substance: VENLAFAXINE HYDROCHLORIDE
  3. FERROUS GLUCONATE [Concomitant]
     Active Substance: FERROUS GLUCONATE
  4. FOLIC ACID [Concomitant]
     Active Substance: FOLIC ACID
  5. HALOPERIDOL [Concomitant]
     Active Substance: HALOPERIDOL
  6. LAMOTRIGINE [Concomitant]
     Active Substance: LAMOTRIGINE
  7. PANTOPRAZOLE [Concomitant]
     Active Substance: PANTOPRAZOLE

REACTIONS (1)
  - Drug interaction [Fatal]
